FAERS Safety Report 6594710-8 (Version None)
Quarter: 2010Q1

REPORT INFORMATION
  Report Type: 
  Country: None (occurrence: None)
  Receive Date: 20100222
  Receipt Date: 20100210
  Transmission Date: 20100710
  Serious: Yes (Hospitalization)
  Sender: FDA-Public Use
  Company Number: JP-AMGEN-US376263

PATIENT
  Sex: Female
  Weight: 44 kg

DRUGS (2)
  1. ENBREL [Suspect]
     Indication: RHEUMATOID ARTHRITIS
     Dosage: 25 MG WEEKLY OF LYOPHILIZED DOSE FORM
     Route: 058
     Dates: start: 20071001, end: 20081001
  2. RHEUMATREX [Suspect]
     Indication: RHEUMATOID ARTHRITIS
     Route: 048
     Dates: end: 20081001

REACTIONS (1)
  - DIFFUSE LARGE B-CELL LYMPHOMA [None]
